FAERS Safety Report 9198425 (Version 2)
Quarter: 2013Q2

REPORT INFORMATION
  Report Type: Spontaneous
  Country: JP (occurrence: None)
  Receive Date: 20130326
  Receipt Date: 20130501
  Transmission Date: 20140414
  Serious: Yes (Death)
  Sender: FDA-Public Use
  Company Number: TCI2013A01595

PATIENT
  Age: 73 Year
  Sex: Male

DRUGS (9)
  1. NESINA [Suspect]
     Indication: TYPE 2 DIABETES MELLITUS
     Route: 048
     Dates: start: 20111011, end: 20111012
  2. AMARYL(GLIMEPIRIDE) [Concomitant]
  3. TETUCUR(FERROPOLIMALER) [Concomitant]
  4. BAYASPIRIN(ACETYLSALICYLIC ACID) [Concomitant]
  5. SIGMART(NICORANDIL) [Concomitant]
  6. MUCODYNE-DS(CARBOCISTEINE) [Concomitant]
  7. GASTER D [Concomitant]
  8. KLARICID [Concomitant]
  9. ENSURE LIQUID(NUTRIENTS NOS) [Concomitant]

REACTIONS (1)
  - Sudden death [None]
